FAERS Safety Report 10431057 (Version 1)
Quarter: 2014Q3

REPORT INFORMATION
  Report Type: Other
  Country: DK (occurrence: IR)
  Receive Date: 20140904
  Receipt Date: 20140904
  Transmission Date: 20150326
  Serious: Yes (Hospitalization)
  Sender: FDA-Public Use
  Company Number: IR-FRI-1000070381

PATIENT

DRUGS (3)
  1. CITALOPRAM [Suspect]
     Active Substance: CITALOPRAM HYDROBROMIDE
     Indication: MAJOR DEPRESSION
     Dosage: 10 MG
  2. CITALOPRAM [Suspect]
     Active Substance: CITALOPRAM HYDROBROMIDE
     Dosage: 20 MG
  3. ASPIRIN. [Suspect]
     Active Substance: ASPIRIN
     Indication: MAJOR DEPRESSION
     Dosage: 160 MG

REACTIONS (3)
  - Drug interaction [Unknown]
  - Anxiety [Unknown]
  - Akathisia [Unknown]
